FAERS Safety Report 16779983 (Version 1)
Quarter: 2019Q3

REPORT INFORMATION
  Report Type: Spontaneous
  Country: CA (occurrence: CA)
  Receive Date: 20190906
  Receipt Date: 20190906
  Transmission Date: 20191005
  Serious: Yes (Other)
  Sender: FDA-Public Use
  Company Number: CA-TEVA-2019-CA-1106047

PATIENT
  Age: 20 Month
  Sex: Female

DRUGS (6)
  1. PROPRANOLOL [Suspect]
     Active Substance: PROPRANOLOL HYDROCHLORIDE
     Dosage: 5 MG/KG DAILY;
     Route: 065
  2. PROPRANOLOL [Suspect]
     Active Substance: PROPRANOLOL HYDROCHLORIDE
     Dosage: 10 MG/KG DAILY;
     Route: 065
  3. DIGOXIN. [Concomitant]
     Active Substance: DIGOXIN
  4. PROPRANOLOL [Suspect]
     Active Substance: PROPRANOLOL HYDROCHLORIDE
     Indication: NODAL ARRHYTHMIA
     Dosage: 7.5 MG/KG DAILY;
     Route: 065
  5. GLUCAGON. [Suspect]
     Active Substance: GLUCAGON
     Indication: NODAL ARRHYTHMIA
     Route: 065
  6. AMIODARONE [Concomitant]
     Active Substance: AMIODARONE

REACTIONS (5)
  - Off label use [Recovered/Resolved]
  - Extra dose administered [Recovered/Resolved]
  - Urine ketone body present [Recovered/Resolved]
  - Hypoglycaemia [Recovered/Resolved]
  - Hypoglycaemic seizure [Recovered/Resolved]
